FAERS Safety Report 11718134 (Version 1)
Quarter: 2015Q4

REPORT INFORMATION
  Report Type: Spontaneous
  Country: IT (occurrence: IT)
  Receive Date: 20151110
  Receipt Date: 20151110
  Transmission Date: 20160304
  Serious: Yes (Other)
  Sender: FDA-Public Use
  Company Number: IT-ACTAVIS-2015-23158

PATIENT
  Sex: Male

DRUGS (1)
  1. QUETIAPINE [Suspect]
     Active Substance: QUETIAPINE
     Indication: ANXIETY
     Dosage: 25 MG, DAILY
     Route: 048

REACTIONS (5)
  - Off label use [Unknown]
  - Intentional product misuse [Unknown]
  - Dry mouth [Unknown]
  - Depression [Unknown]
  - Panic attack [Unknown]
